FAERS Safety Report 14352816 (Version 1)
Quarter: 2018Q1

REPORT INFORMATION
  Report Type: Spontaneous
  Country: US (occurrence: US)
  Receive Date: 20180104
  Receipt Date: 20180104
  Transmission Date: 20180509
  Serious: No
  Sender: FDA-Public Use
  Company Number: US-009507513-1801USA001057

PATIENT
  Age: 73 Year
  Sex: Female

DRUGS (4)
  1. VASTIN [Concomitant]
     Dosage: 20 MG, UNK
  2. BELSOMRA [Suspect]
     Active Substance: SUVOREXANT
     Indication: INSOMNIA
     Dosage: 1 TABLET BY MOUTH BEFORE BEDTIME
     Route: 048
     Dates: start: 20180101, end: 20180101
  3. AMOXICILLIN. [Concomitant]
     Active Substance: AMOXICILLIN
  4. VAGIFEM [Concomitant]
     Active Substance: ESTRADIOL

REACTIONS (1)
  - Drug ineffective [Unknown]

NARRATIVE: CASE EVENT DATE: 20180101
